FAERS Safety Report 6718648-8 (Version None)
Quarter: 2010Q2

REPORT INFORMATION
  Report Type: 
  Country: None (occurrence: None)
  Receive Date: 20100510
  Receipt Date: 20100423
  Transmission Date: 20101027
  Serious: Yes (Other)
  Sender: FDA-Public Use
  Company Number: JP-GENENTECH-299465

PATIENT
  Sex: Male

DRUGS (3)
  1. RANIBIZUMAB [Suspect]
     Indication: MACULAR DEGENERATION
     Dosage: 0.05 ML, UNKNOWN
     Route: 031
     Dates: start: 20090527
  2. LEVOFLOXACIN [Suspect]
     Indication: PROPHYLAXIS
     Dosage: 3 DF, UNKNOWN
     Route: 048
     Dates: start: 20090527, end: 20090803
  3. BETAMETHASONE SODIUM PHOSPHATE [Concomitant]
     Indication: DRUG USE FOR UNKNOWN INDICATION
     Dosage: UNK
     Dates: start: 20090527, end: 20090803

REACTIONS (3)
  - CORNEAL EROSION [None]
  - INJURY ASSOCIATED WITH DEVICE [None]
  - VISUAL ACUITY REDUCED [None]
